FAERS Safety Report 17881510 (Version 1)
Quarter: 2020Q2

REPORT INFORMATION
  Report Type: Spontaneous
  Country: US (occurrence: US)
  Receive Date: 20200610
  Receipt Date: 20200610
  Transmission Date: 20200714
  Serious: No
  Sender: FDA-Public Use
  Company Number: US-COLLEGIUM PHARMACEUTICAL, INC.-2020CGM00023

PATIENT
  Age: 61 Year
  Sex: Female

DRUGS (2)
  1. XTAMPZA ER [Suspect]
     Active Substance: OXYCODONE
     Dosage: 9 MG, 1X/DAY
     Dates: start: 20200115, end: 20200121
  2. XTAMPZA ER [Suspect]
     Active Substance: OXYCODONE
     Indication: NECK PAIN
     Dosage: 9 MG, 2X/DAY
     Dates: start: 20200122, end: 2020

REACTIONS (2)
  - Hallucination [Recovered/Resolved]
  - Inappropriate schedule of product administration [Recovered/Resolved]

NARRATIVE: CASE EVENT DATE: 20200115
